FAERS Safety Report 8586247-1 (Version None)
Quarter: 2012Q3

REPORT INFORMATION
  Report Type: 
  Country: None (occurrence: None)
  Receive Date: 20120810
  Receipt Date: 20120806
  Transmission Date: 20120928
  Serious: Yes (Hospitalization)
  Sender: FDA-Public Use
  Company Number: BE-ROCHE-1097953

PATIENT
  Age: 72 Year
  Sex: Female
  Weight: 49 kg

DRUGS (8)
  1. BELSAR (BELGIUM) [Concomitant]
     Indication: HYPERTENSION
     Route: 048
     Dates: end: 20101019
  2. AVASTIN [Suspect]
     Indication: COLORECTAL CANCER METASTATIC
     Route: 042
     Dates: start: 20100908, end: 20110111
  3. EFFORTIL [Concomitant]
     Indication: HYPOTENSION
     Route: 048
     Dates: end: 20101213
  4. OXALIPLATIN [Suspect]
     Indication: COLORECTAL CANCER METASTATIC
     Route: 042
     Dates: start: 20100908, end: 20101130
  5. FLUOROURACIL [Suspect]
     Indication: COLORECTAL CANCER METASTATIC
     Route: 042
     Dates: start: 20100908, end: 20101213
  6. BROMAZEPAM [Concomitant]
     Indication: ANXIETY
     Route: 048
  7. DIAMICRON [Concomitant]
     Indication: DIABETES MELLITUS
     Route: 048
  8. LIPITOR [Concomitant]
     Indication: HYPERCHOLESTEROLAEMIA
     Route: 048

REACTIONS (7)
  - ANAEMIA [None]
  - CONSTIPATION [None]
  - ABDOMINAL PAIN [None]
  - FATIGUE [None]
  - HYPOTENSION [None]
  - EPISTAXIS [None]
  - FAECALITH [None]
